FAERS Safety Report 4660950-8 (Version None)
Quarter: 2005Q2

REPORT INFORMATION
  Report Type: 
  Country: None (occurrence: None)
  Receive Date: 20050511
  Receipt Date: 20050502
  Transmission Date: 20051028
  Serious: Yes (Other)
  Sender: FDA-Public Use
  Company Number: 2005069165

PATIENT
  Sex: Male

DRUGS (1)
  1. CELEBREX [Suspect]
     Indication: ARTHRALGIA

REACTIONS (4)
  - ANAEMIA [None]
  - FATIGUE [None]
  - MENISCUS LESION [None]
  - SOMNOLENCE [None]
